FAERS Safety Report 16897757 (Version 1)
Quarter: 2019Q4

REPORT INFORMATION
  Report Type: Spontaneous
  Country: US (occurrence: US)
  Receive Date: 20191009
  Receipt Date: 20191009
  Transmission Date: 20200122
  Serious: Yes (Other)
  Sender: FDA-Public Use
  Company Number: US-NOVOPROD-688500

PATIENT
  Sex: Female

DRUGS (1)
  1. LEVEMIR [Suspect]
     Active Substance: INSULIN DETEMIR
     Indication: DIABETES MELLITUS
     Dosage: UNK
     Route: 058
     Dates: start: 2013

REACTIONS (7)
  - Osteoporosis [Not Recovered/Not Resolved]
  - Head injury [Unknown]
  - Fall [Unknown]
  - Cerebrovascular accident [Unknown]
  - Cardiac disorder [Not Recovered/Not Resolved]
  - Nephropathy [Not Recovered/Not Resolved]
  - Hypertension [Not Recovered/Not Resolved]
